FAERS Safety Report 24657214 (Version 1)
Quarter: 2024Q4

REPORT INFORMATION
  Report Type: Spontaneous
  Country: US (occurrence: US)
  Receive Date: 20241125
  Receipt Date: 20241125
  Transmission Date: 20250114
  Serious: No
  Sender: BAXTER
  Company Number: US-BAXTER-2024BAX028119

PATIENT

DRUGS (1)
  1. DOXORUBICIN [Suspect]
     Active Substance: DOXORUBICIN
     Dosage: 2.5ML
     Route: 065

REACTIONS (1)
  - Administration site extravasation [Unknown]
